FAERS Safety Report 25337447 (Version 1)
Quarter: 2025Q2

REPORT INFORMATION
  Report Type: Spontaneous
  Country: US (occurrence: None)
  Receive Date: 20250520
  Receipt Date: 20250520
  Transmission Date: 20250717
  Serious: No
  Sender: FDA-CTU
  Company Number: None

PATIENT
  Age: 80 Year
  Sex: Female

DRUGS (1)
  1. DUPIXENT [Suspect]
     Active Substance: DUPILUMAB
     Indication: Chronic obstructive pulmonary disease
     Route: 058
     Dates: start: 20250422, end: 20250425

REACTIONS (4)
  - Wheezing [None]
  - Dyspnoea [None]
  - Eye haemorrhage [None]
  - Pyrexia [None]

NARRATIVE: CASE EVENT DATE: 20250426
